FAERS Safety Report 4535109-5 (Version None)
Quarter: 2004Q4

REPORT INFORMATION
  Report Type: 
  Country: None (occurrence: None)
  Receive Date: 20041222
  Receipt Date: 20041216
  Transmission Date: 20050328
  Serious: Yes (Other)
  Sender: FDA-Public Use
  Company Number: GB-MERCK-0412USA02057

PATIENT
  Age: 48 Year
  Sex: Female

DRUGS (9)
  1. PRINIVIL [Suspect]
     Indication: HYPERTENSION
     Route: 048
  2. BISOPROLOL [Concomitant]
     Route: 065
  3. ASPIRIN [Concomitant]
     Route: 065
  4. VALPROIC ACID [Concomitant]
     Route: 065
  5. FEXOFENADINE HYDROCHLORIDE [Concomitant]
     Route: 065
  6. OMEPRAZOLE [Concomitant]
     Route: 065
  7. LOFEPRAMINE HYDROCHLORIDE [Concomitant]
     Route: 065
  8. ESTROGENS, CONJUGATED [Concomitant]
     Route: 067
  9. PENICILLIN V [Concomitant]
     Route: 065

REACTIONS (4)
  - ANGIONEUROTIC OEDEMA [None]
  - DYSPHAGIA [None]
  - DYSPHONIA [None]
  - DYSPNOEA [None]
